FAERS Safety Report 24526718 (Version 1)
Quarter: 2024Q4

REPORT INFORMATION
  Report Type: Spontaneous
  Country: ES (occurrence: ES)
  Receive Date: 20241021
  Receipt Date: 20241021
  Transmission Date: 20250115
  Serious: Yes (Hospitalization, Other)
  Sender: JUBILANT
  Company Number: None

PATIENT
  Sex: Female

DRUGS (1)
  1. OLANZAPINE [Suspect]
     Active Substance: OLANZAPINE
     Indication: Schizophrenia
     Dosage: 20 MG, ONCE PER DAY, ON PREVIOUS ADMISSION, EPISODES OF ANAEMIA AND NEUTROPENIA RELATED TO INCREASED
     Route: 065

REACTIONS (1)
  - Haemolytic anaemia [Recovering/Resolving]
